FAERS Safety Report 4768635-4 (Version None)
Quarter: 2005Q3

REPORT INFORMATION
  Report Type: 
  Country: None (occurrence: None)
  Receive Date: 20050914
  Receipt Date: 20050831
  Transmission Date: 20060218
  Serious: Yes (Other)
  Sender: FDA-Public Use
  Company Number: PHNU2005DE03021

PATIENT
  Age: 62 Year
  Sex: Male
  Weight: 84 kg

DRUGS (1)
  1. ZOMETA [Suspect]
     Indication: METASTASES TO BONE
     Dosage: 4 MG, ONCE/SINGLE
     Dates: start: 20050628, end: 20050628

REACTIONS (4)
  - BEDRIDDEN [None]
  - CHILLS [None]
  - PYREXIA [None]
  - STUPOR [None]
